FAERS Safety Report 10085494 (Version 2)
Quarter: 2014Q2

REPORT INFORMATION
  Report Type: Spontaneous
  Country: US (occurrence: US)
  Receive Date: 20140418
  Receipt Date: 20140509
  Transmission Date: 20141212
  Serious: No
  Sender: FDA-Public Use
  Company Number: US-BIOGENIDEC-2014BI036299

PATIENT
  Age: 40 Year
  Sex: Female

DRUGS (14)
  1. TYSABRI [Suspect]
     Indication: PRODUCT USED FOR UNKNOWN INDICATION
     Route: 042
  2. AMPYRA [Concomitant]
     Route: 048
     Dates: start: 201402
  3. BACLOFEN [Concomitant]
  4. MODAFINIL GENERIS [Concomitant]
  5. OXYBUTYNIN CHLORIDE [Concomitant]
  6. ADVIL [Concomitant]
  7. FISH OIL NATURE MADE [Concomitant]
  8. ASCORBIC ACID [Concomitant]
  9. ERGOCALCIFEROL [Concomitant]
  10. FOLIC ACID [Concomitant]
  11. NICOTINAMIDE [Concomitant]
  12. CHLORPHENAMINE MALEATE [Concomitant]
  13. DEXTROMETHORPHAN HYDROBROMIDE [Concomitant]
  14. PSEUDOEPHEDRINE HYDROCHLORIDE [Concomitant]

REACTIONS (2)
  - Mobility decreased [Not Recovered/Not Resolved]
  - Depressed mood [Not Recovered/Not Resolved]
